FAERS Safety Report 9894176 (Version 1)
Quarter: 2014Q1

REPORT INFORMATION
  Report Type: Spontaneous
  Country: JP (occurrence: JP)
  Receive Date: 20140213
  Receipt Date: 20140213
  Transmission Date: 20141002
  Serious: Yes (Other)
  Sender: FDA-Public Use
  Company Number: JP-BAYER-2014-019848

PATIENT
  Sex: 0

DRUGS (1)
  1. CIPROXAN [Suspect]
     Route: 041

REACTIONS (2)
  - Blood creatine phosphokinase increased [Unknown]
  - Rash [Unknown]
